FAERS Safety Report 6620574-X (Version None)
Quarter: 2010Q1

REPORT INFORMATION
  Report Type: 
  Country: None (occurrence: None)
  Receive Date: 20100309
  Receipt Date: 20100222
  Transmission Date: 20100710
  Serious: Yes (Other)
  Sender: FDA-Public Use
  Company Number: JP-MERCK-1002USA03449

PATIENT
  Age: 22 Year
  Sex: Male

DRUGS (1)
  1. PRIMAXIN [Suspect]
     Indication: ENDOCARDITIS STAPHYLOCOCCAL
     Route: 042

REACTIONS (2)
  - DRUG RESISTANCE [None]
  - RENAL INFARCT [None]
